FAERS Safety Report 5891863-1 (Version None)
Quarter: 2008Q3

REPORT INFORMATION
  Report Type: 
  Country: None (occurrence: None)
  Receive Date: 20080922
  Receipt Date: 20080910
  Transmission Date: 20090109
  Serious: Yes (Other)
  Sender: FDA-Public Use
  Company Number: CA-PFIZER INC-2008076492

PATIENT
  Sex: Female

DRUGS (2)
  1. ZELDOX (CAPSULES) [Suspect]
     Dosage: DAILY DOSE:100MG
     Route: 048
  2. SEROQUEL [Concomitant]

REACTIONS (5)
  - AGITATION [None]
  - AKATHISIA [None]
  - EUPHORIC MOOD [None]
  - INSOMNIA [None]
  - SUICIDAL IDEATION [None]
